FAERS Safety Report 26193851 (Version 1)
Quarter: 2025Q4

REPORT INFORMATION
  Report Type: Spontaneous
  Country: GB (occurrence: GB)
  Receive Date: 20251224
  Receipt Date: 20251224
  Transmission Date: 20260119
  Serious: Yes (Disabling, Other)
  Sender: CHEPLAPHARM
  Company Number: None

PATIENT
  Age: 53 Year
  Sex: Female
  Weight: 121 kg

DRUGS (16)
  1. ORLISTAT [Suspect]
     Active Substance: ORLISTAT
     Indication: Pulmonary embolism
     Route: 048
     Dates: start: 20251017
  2. NITROFURANTOIN [Concomitant]
     Active Substance: NITROFURANTOIN
     Dosage: TAKE ONE CAPSULE TWICE DAILY FOR THREE DAYS FOR INFECTION?DAILY DOSE: 2 DOSAGE FORM
     Dates: start: 20251121, end: 20251124
  3. ALBUTEROL [Concomitant]
     Active Substance: ALBUTEROL
     Dosage: ASTHMA: INHALE TWO PUFFS SLOW AND STEADY, WHEN
     Route: 055
     Dates: start: 20251205
  4. AMITRIPTYLINE HYDROCHLORIDE [Concomitant]
     Active Substance: AMITRIPTYLINE HYDROCHLORIDE
     Dosage: TWO TO BE TAKEN AT NIGHT WHEN REQUIRED
     Dates: start: 20250226
  5. ATORVASTATIN [Concomitant]
     Active Substance: ATORVASTATIN
     Dosage: TO LOWER CHOLESTEROL?DAILY DOSE: 1 DOSAGE FORM
     Dates: start: 20250226
  6. CARBOCYSTEINE [Concomitant]
     Active Substance: CARBOCYSTEINE
     Dosage: 2 TO BE TAKEN THREE TTIMES DAILY TO REDUCE SPUT...
     Dates: start: 20250226
  7. COCODAMOL [Concomitant]
     Active Substance: ACETAMINOPHEN\CODEINE PHOSPHATE
     Dosage: 1 TO BE TAKEN WHEN REQUIRED FOR PAIN RELIEF, UP...
     Dates: start: 20250226
  8. MOMETASONE [Concomitant]
     Active Substance: MOMETASONE
     Dosage: 2 SPRAYS INTO EACH NOSTRIL ONCE DAILY, INCREASE...
     Dates: start: 20250226
  9. MONTELUKAST [Concomitant]
     Active Substance: MONTELUKAST
     Dosage: TAKE ONE AT NIGHT FOR ASTHMA?DAILY DOSE: 1 DOSAGE FORM
     Dates: start: 20250226
  10. SERTRALINE [Concomitant]
     Active Substance: SERTRALINE HYDROCHLORIDE
     Dosage: FOR MOOD?DAILY DOSE: 125 MILLIGRAM
     Dates: start: 20250226
  11. HYALURONATE SODIUM\TREHALOSE [Concomitant]
     Active Substance: HYALURONATE SODIUM\TREHALOSE
     Dosage: FOR USE AT NIGHT
     Dates: start: 20250226
  12. BECLOMETHASONE DIPROPIONATE\FORMOTEROL FUMARATE\GLYCOPYRROLATE [Concomitant]
     Active Substance: BECLOMETHASONE DIPROPIONATE\FORMOTEROL FUMARATE\GLYCOPYRROLATE
     Dosage: INHALE 2 PUFFS, SLOW AND STEADY, TWICE DAILY VI...
     Route: 055
     Dates: start: 20250226
  13. WARFARIN SODIUM [Concomitant]
     Active Substance: WARFARIN SODIUM
     Dosage: TAKE AS INSTRUCTED BY ANTICOAGULANT CLINIC
     Dates: start: 20250226
  14. FYBOGEL [Concomitant]
     Active Substance: HERBALS\PLANTAGO OVATA SEED
     Dosage: 1 SACHET DAILY AS ADVISED
     Dates: start: 20250423
  15. SOLIFENACIN [Concomitant]
     Active Substance: SOLIFENACIN
     Dosage: 1 DAILY?DAILY DOSE: 1 DOSAGE FORM
     Dates: start: 20250423
  16. TOLTERODINE TARTRATE [Concomitant]
     Active Substance: TOLTERODINE TARTRATE
     Dosage: TAKE ONE TWICE DAILY
     Dates: start: 20250611, end: 20250924

REACTIONS (4)
  - Haematuria [Not Recovered/Not Resolved]
  - Renal pain [Not Recovered/Not Resolved]
  - Insomnia [Recovering/Resolving]
  - Off label use [Recovered/Resolved]

NARRATIVE: CASE EVENT DATE: 20251017
